FAERS Safety Report 19613090 (Version 1)
Quarter: 2021Q3

REPORT INFORMATION
  Report Type: Spontaneous
  Country: US (occurrence: US)
  Receive Date: 20210727
  Receipt Date: 20210727
  Transmission Date: 20211014
  Serious: No
  Sender: FDA-Public Use
  Company Number: US-LUPIN PHARMACEUTICALS INC.-2021-12623

PATIENT
  Age: 27 Year
  Sex: Female

DRUGS (5)
  1. INSULIN [Suspect]
     Active Substance: INSULIN NOS
     Indication: TYPE 1 DIABETES MELLITUS
     Dosage: UNK
     Route: 065
  2. ACICLOVIR [Suspect]
     Active Substance: ACYCLOVIR
     Indication: VARICELLA ZOSTER VIRUS INFECTION
     Dosage: UNK
     Route: 042
  3. FIORICET [Suspect]
     Active Substance: ACETAMINOPHEN\BUTALBITAL\CAFFEINE
     Indication: DRUG THERAPY
     Dosage: UNK
     Route: 065
  4. OXYCODONE [Suspect]
     Active Substance: OXYCODONE
     Indication: SYMPTOMATIC TREATMENT
     Dosage: UNK
     Route: 065
  5. ACETAMINOPHEN. [Suspect]
     Active Substance: ACETAMINOPHEN
     Indication: DRUG THERAPY
     Dosage: UNK
     Route: 065

REACTIONS (3)
  - Exposure during pregnancy [Unknown]
  - Treatment failure [Unknown]
  - Normal newborn [Unknown]
